FAERS Safety Report 10399600 (Version 1)
Quarter: 2014Q3

REPORT INFORMATION
  Report Type: Spontaneous
  Country: US (occurrence: None)
  Receive Date: 20140819
  Receipt Date: 20140819
  Transmission Date: 20150326
  Serious: Yes (Death)
  Sender: FDA-Public Use
  Company Number: None

PATIENT
  Age: 80 Year
  Sex: Male
  Weight: 80 kg

DRUGS (6)
  1. DENOSUMAB (XGEVA) [Concomitant]
  2. AMLODIPINE [Concomitant]
     Active Substance: AMLODIPINE BESYLATE
  3. CASODEX [Suspect]
     Active Substance: BICALUTAMIDE
     Dates: end: 20140728
  4. ASPIRIN. [Concomitant]
     Active Substance: ASPIRIN
  5. FLOMAX [Concomitant]
     Active Substance: TAMSULOSIN HYDROCHLORIDE
  6. LEUPROLIDE ACETATE. [Suspect]
     Active Substance: LEUPROLIDE ACETATE
     Dates: end: 20140729

REACTIONS (7)
  - Blood pressure increased [None]
  - Back pain [None]
  - Myocardial infarction [None]
  - Erectile dysfunction [None]
  - Libido decreased [None]
  - Pain in jaw [None]
  - Cardio-respiratory arrest [None]

NARRATIVE: CASE EVENT DATE: 20140805
